FAERS Safety Report 5286235-7 (Version None)
Quarter: 2007Q2

REPORT INFORMATION
  Report Type: 
  Country: None (occurrence: None)
  Receive Date: 20070404
  Receipt Date: 20070326
  Transmission Date: 20071010
  Serious: Yes (Hospitalization)
  Sender: FDA-Public Use
  Company Number: FR-AVENTIS-200711123FR

PATIENT
  Age: 80 Year
  Sex: Male
  Weight: 73 kg

DRUGS (9)
  1. LASILIX                            /00032601/ [Suspect]
     Route: 048
  2. ALDACTONE [Suspect]
     Route: 048
     Dates: start: 20061115
  3. HYPERIUM                           /00939801/ [Suspect]
     Route: 048
  4. CHRONADALATE [Suspect]
     Route: 048
  5. COZAAR [Suspect]
     Route: 048
  6. OMIX [Concomitant]
     Indication: BENIGN PROSTATIC HYPERPLASIA
     Route: 048
  7. NEO-MERCAZOLE TAB [Concomitant]
     Indication: HYPERTHYROIDISM
     Route: 048
  8. ARANESP [Concomitant]
     Indication: RENAL FAILURE CHRONIC
  9. DIAMICRON [Concomitant]
     Indication: DIABETES MELLITUS
     Route: 048

REACTIONS (6)
  - BLOOD CREATININE INCREASED [None]
  - DRUG INTERACTION [None]
  - HYPONATRAEMIA [None]
  - HYPOTENSION [None]
  - LOSS OF CONSCIOUSNESS [None]
  - VOMITING [None]
